FAERS Safety Report 5659212-1 (Version None)
Quarter: 2008Q1

REPORT INFORMATION
  Report Type: 
  Country: None (occurrence: None)
  Receive Date: 20080201
  Receipt Date: 20050406
  Transmission Date: 20080703
  Serious: No
  Sender: FDA-Public Use
  Company Number: 20074401

PATIENT
  Sex: Female

DRUGS (1)
  1. LIORESAL [Suspect]
     Indication: MUSCLE SPASTICITY
     Dosage: 288 MCG, DAILY, INTRATHECAL
     Route: 037

REACTIONS (5)
  - DIZZINESS [None]
  - HEADACHE [None]
  - NAUSEA [None]
  - PAIN [None]
  - SOMNOLENCE [None]
